FAERS Safety Report 21143506 (Version 2)
Quarter: 2022Q3

REPORT INFORMATION
  Report Type: Other
  Country: US (occurrence: US)
  Receive Date: 20220728
  Receipt Date: 20220729
  Transmission Date: 20221027
  Serious: Yes (Hospitalization, Other)
  Sender: FDA-Public Use
  Company Number: US-Aprecia Pharmaceuticals-APRE20220184

PATIENT
  Age: 3 Year
  Sex: Male
  Weight: 22.7 kg

DRUGS (4)
  1. LEVETIRACETAM [Suspect]
     Active Substance: LEVETIRACETAM
     Indication: Status epilepticus
     Dosage: 40 MG / KG (920 MG); IN THE ED X 1
     Route: 042
     Dates: start: 20220409, end: 20220409
  2. LEVETIRACETAM [Suspect]
     Active Substance: LEVETIRACETAM
     Dosage: UNKNOWN
     Route: 065
     Dates: start: 20190310, end: 20190326
  3. LORAZEPAM [Concomitant]
     Active Substance: LORAZEPAM
     Indication: Status epilepticus
     Dosage: 1 MG; IN THE ED X 1
     Route: 042
     Dates: start: 20220409, end: 20220409
  4. FOSPHENYTOIN [Concomitant]
     Active Substance: FOSPHENYTOIN
     Indication: Status epilepticus
     Dosage: 20 MG / KG (454 MG); LOADED 3 HOURS LATER IN THE ED X 1
     Route: 042
     Dates: start: 20220409, end: 20220409

REACTIONS (10)
  - Delirium [Recovered/Resolved]
  - Aggression [Recovered/Resolved]
  - Screaming [Recovered/Resolved]
  - Crying [Recovered/Resolved]
  - Confusional state [Recovered/Resolved]
  - Disorientation [Recovered/Resolved]
  - Agitation [Recovered/Resolved]
  - Aggression [Recovered/Resolved]
  - Ataxia [Recovered/Resolved]
  - Drug hypersensitivity [Not Recovered/Not Resolved]

NARRATIVE: CASE EVENT DATE: 20220410
